FAERS Safety Report 15390490 (Version 1)
Quarter: 2018Q3

REPORT INFORMATION
  Report Type: Spontaneous
  Country: US (occurrence: US)
  Receive Date: 20180917
  Receipt Date: 20180917
  Transmission Date: 20181010
  Serious: Yes (Other)
  Sender: FDA-Public Use
  Company Number: US-BION-007422

PATIENT
  Age: 17 Year
  Sex: Male

DRUGS (1)
  1. ALEVE [Suspect]
     Active Substance: NAPROXEN SODIUM
     Dosage: TOOK ABOUT 10 ALEVE LIQUID GELS
     Route: 048
     Dates: start: 20180904, end: 20180904

REACTIONS (3)
  - Suicide attempt [Unknown]
  - Intentional overdose [Not Recovered/Not Resolved]
  - Somnolence [Unknown]

NARRATIVE: CASE EVENT DATE: 20180904
